FAERS Safety Report 4520194-7 (Version None)
Quarter: 2004Q4

REPORT INFORMATION
  Report Type: 
  Country: None (occurrence: None)
  Receive Date: 20041202
  Receipt Date: 20041202
  Transmission Date: 20050328
  Serious: Yes (Life-Threatening, Hospitalization)
  Sender: FDA-Public Use
  Company Number: None

PATIENT
  Age: 58 Year
  Sex: Female

DRUGS (2)
  1. 8840 SYNCHRONMED B 8627-18 18 ML W SIDE PORT MEDTRONIC [Suspect]
     Indication: PAIN MANAGEMENT
     Dates: start: 20041001, end: 20041004
  2. MSCL 65.0 MG/ML [Suspect]
     Dosage: 19 MG DAY INTRATHECA
     Route: 039
     Dates: start: 20041004, end: 20041201

REACTIONS (4)
  - COMA [None]
  - INJECTION SITE EXTRAVASATION [None]
  - MEDICATION ERROR [None]
  - OVERDOSE [None]
